FAERS Safety Report 24640393 (Version 2)
Quarter: 2025Q2

REPORT INFORMATION
  Report Type: Spontaneous
  Country: JP (occurrence: JP)
  Receive Date: 20241120
  Receipt Date: 20250522
  Transmission Date: 20250716
  Serious: Yes (Death, Hospitalization, Other)
  Sender: ALEXION PHARMACEUTICALS
  Company Number: JP-ASTRAZENECA-240128585_013020_P_1

PATIENT
  Age: 72 Year
  Weight: 51 kg

DRUGS (8)
  1. OSIMERTINIB [Suspect]
     Active Substance: OSIMERTINIB
     Indication: Non-small cell lung cancer
     Dosage: 80 MILLIGRAM, QD
  2. OSIMERTINIB [Suspect]
     Active Substance: OSIMERTINIB
     Dosage: 40 MILLIGRAM, QD
  3. ESOMEPRAZOLE [Concomitant]
     Active Substance: ESOMEPRAZOLE
  4. ESOMEPRAZOLE [Concomitant]
     Active Substance: ESOMEPRAZOLE
  5. LEVETIRACETAM [Concomitant]
     Active Substance: LEVETIRACETAM
     Route: 065
  6. LEVETIRACETAM [Concomitant]
     Active Substance: LEVETIRACETAM
     Route: 065
  7. MAGNESIUM OXIDE [Concomitant]
     Active Substance: MAGNESIUM OXIDE
     Route: 065
  8. MAGNESIUM OXIDE [Concomitant]
     Active Substance: MAGNESIUM OXIDE
     Route: 065

REACTIONS (6)
  - Anaemia [Unknown]
  - Infection [Unknown]
  - Respiratory tract haemorrhage [Fatal]
  - Tracheal stenosis [Fatal]
  - Skin laceration [Unknown]
  - Interstitial lung disease [Fatal]
